FAERS Safety Report 8106955-6 (Version None)
Quarter: 2012Q1

REPORT INFORMATION
  Report Type: 
  Country: None (occurrence: None)
  Receive Date: 20120202
  Receipt Date: 20120120
  Transmission Date: 20120608
  Serious: Yes (Other)
  Sender: FDA-Public Use
  Company Number: IT-CELGENEUS-083-21880-12012107

PATIENT
  Sex: Female

DRUGS (3)
  1. FUROSEMIDE [Concomitant]
     Route: 048
  2. REVLIMID [Suspect]
     Indication: MULTIPLE MYELOMA
     Dosage: 15 MILLIGRAM
     Route: 048
     Dates: start: 20101222, end: 20110409
  3. ACETYLSALICYLIC ACID SRT [Concomitant]
     Route: 048

REACTIONS (1)
  - HEPATOTOXICITY [None]
